FAERS Safety Report 8924299 (Version 1)
Quarter: 2012Q4

REPORT INFORMATION
  Report Type: 
  Country: FR (occurrence: FR)
  Receive Date: 20121126
  Receipt Date: 20121126
  Transmission Date: 20130627
  Serious: Yes (Other)
  Sender: FDA-Public Use
  Company Number: FR-VIIV HEALTHCARE LIMITED-B0844253A

PATIENT
  Age: 51 Year
  Sex: Male

DRUGS (4)
  1. EPIVIR [Suspect]
     Indication: HIV INFECTION
     Dosage: 300MG Per day
     Route: 048
     Dates: start: 20120906
  2. FUZEON [Suspect]
     Indication: HIV INFECTION
     Dosage: 90MG Twice per day
     Dates: start: 20120906, end: 20120915
  3. ISENTRESS [Concomitant]
     Indication: HIV INFECTION
     Route: 065
     Dates: start: 2008
  4. VIREAD [Concomitant]
     Indication: HIV INFECTION
     Route: 065
     Dates: start: 2001

REACTIONS (3)
  - Skin mass [Recovered/Resolved]
  - Pyrexia [Recovered/Resolved]
  - Injection site nodule [None]
